FAERS Safety Report 22999643 (Version 2)
Quarter: 2023Q4

REPORT INFORMATION
  Report Type: Spontaneous
  Country: PT (occurrence: PT)
  Receive Date: 20230928
  Receipt Date: 20231013
  Transmission Date: 20240110
  Serious: Yes (Hospitalization, Other)
  Sender: FDA-Public Use
  Company Number: PT-ELI_LILLY_AND_COMPANY-PT202309011719

PATIENT
  Age: 41 Year
  Sex: Male

DRUGS (7)
  1. TALTZ [Suspect]
     Active Substance: IXEKIZUMAB
     Indication: Psoriasis
     Dosage: UNK, UNKNOWN
     Route: 065
     Dates: start: 20200609, end: 202112
  2. TALTZ [Suspect]
     Active Substance: IXEKIZUMAB
     Dosage: UNK, UNKNOWN
     Route: 065
     Dates: start: 20230124
  3. SALAZOPYRINE [Concomitant]
     Active Substance: SULFASALAZINE
     Indication: Product used for unknown indication
     Dosage: 500 MG, BID
     Route: 065
  4. NEOTIGASON [Concomitant]
     Active Substance: ACITRETIN
     Indication: Product used for unknown indication
     Dosage: 25 MG, BID
     Route: 065
  5. CILESTODERME [Concomitant]
     Indication: Product used for unknown indication
     Dosage: UNK UNK, BID
     Route: 065
  6. NAPROXEN [Concomitant]
     Active Substance: NAPROXEN
     Indication: Pain
     Dosage: 500 MG, BID
     Route: 065
  7. PERINDOPRIL [Concomitant]
     Active Substance: PERINDOPRIL
     Indication: Product used for unknown indication
     Dosage: 5 MG, BID
     Route: 065

REACTIONS (4)
  - Sepsis [Recovered/Resolved]
  - Pneumonia klebsiella [Recovered/Resolved]
  - Pneumonia haemophilus [Recovered/Resolved]
  - B-cell lymphoma recurrent [Unknown]

NARRATIVE: CASE EVENT DATE: 20211119
